FAERS Safety Report 9239038 (Version 1)
Quarter: 2013Q2

REPORT INFORMATION
  Report Type: Spontaneous
  Country: FR (occurrence: FR)
  Receive Date: 20130418
  Receipt Date: 20130418
  Transmission Date: 20140414
  Serious: Yes (Death, Hospitalization, Other)
  Sender: FDA-Public Use
  Company Number: FR-UCBSA-083069

PATIENT
  Age: 57 Year
  Sex: Female

DRUGS (4)
  1. KEPPRA [Suspect]
     Indication: STATUS EPILEPTICUS
     Route: 042
     Dates: start: 20130204, end: 20130305
  2. ROCEPHINE [Suspect]
     Route: 042
     Dates: start: 20130204, end: 20130305
  3. ZOVIRAX [Concomitant]
     Route: 042
     Dates: start: 20130204
  4. AMOXICILLIN [Concomitant]
     Dates: start: 20130204

REACTIONS (4)
  - Drug reaction with eosinophilia and systemic symptoms [Fatal]
  - Pyrexia [Unknown]
  - Herpes simplex [Unknown]
  - Septic shock [Unknown]
